FAERS Safety Report 17030588 (Version 1)
Quarter: 2019Q4

REPORT INFORMATION
  Report Type: Spontaneous
  Country: US (occurrence: US)
  Receive Date: 20191113
  Receipt Date: 20191113
  Transmission Date: 20200122
  Serious: Yes (Life-Threatening, Disabling)
  Sender: FDA-Public Use
  Company Number: None

PATIENT
  Age: 53 Year
  Sex: Male
  Weight: 75.3 kg

DRUGS (23)
  1. MILK THISTLE 250MG [Concomitant]
  2. TESTOSTERONE CYPONATE 1000 MG/10 [Concomitant]
  3. COQ10 400MG [Concomitant]
  4. VITAMIN D3 125MCG [Concomitant]
  5. MENS ONE A DAY [Concomitant]
  6. CINNAMOMUM VERUM BARK [Concomitant]
     Active Substance: CINNAMON
  7. PAROXETINE HCL 20MG TAB AURO-GENERIC FOR PAXIL MEIJER PHARMACY [Concomitant]
     Active Substance: PAROXETINE HYDROCHLORIDE
  8. MEDICAL COMPRESSION THIGH HIGH CANNBIBUS [Concomitant]
  9. OMEGA FISH OILS 300MG [Concomitant]
  10. PRIVIGEN [Suspect]
     Active Substance: HUMAN IMMUNOGLOBULIN G
     Indication: CHRONIC INFLAMMATORY DEMYELINATING POLYRADICULONEUROPATHY
     Dosage: FREQUENCY:  3 DAYS MONTHLY?HOW WAS IT TAKEN:  PAPID IV INFISION
     Dates: start: 20180212, end: 20180731
  11. PRIVIGEN [Suspect]
     Active Substance: HUMAN IMMUNOGLOBULIN G
     Indication: IMMUNE SYSTEM DISORDER
     Dosage: FREQUENCY:  3 DAYS MONTHLY?HOW WAS IT TAKEN:  PAPID IV INFISION
     Dates: start: 20180212, end: 20180731
  12. ADDERALL [Concomitant]
     Active Substance: AMPHETAMINE ASPARTATE\AMPHETAMINE SULFATE\DEXTROAMPHETAMINE SACCHARATE\DEXTROAMPHETAMINE SULFATE
  13. CIALIS .05MG [Concomitant]
  14. NAPROXEN 500MG [Concomitant]
     Active Substance: NAPROXEN
  15. CALCIUM 200MG [Concomitant]
  16. TRAODONE HCL 100MG [Concomitant]
  17. CICLOPIROX CLONAZEPAM .05 [Concomitant]
  18. TUMERIC 538MG [Concomitant]
  19. THYME. [Concomitant]
     Active Substance: THYME
  20. SYNTHROID [Concomitant]
     Active Substance: LEVOTHYROXINE SODIUM
  21. CHLORHEXIDINE GLUCONATE. [Concomitant]
     Active Substance: CHLORHEXIDINE GLUCONATE
  22. MAGNESIUM MALATE 625MG [Concomitant]
  23. GARLIC. [Concomitant]
     Active Substance: GARLIC

REACTIONS (9)
  - Cerebrovascular accident [None]
  - Haemolysis [None]
  - Meningitis bacterial [None]
  - Encephalopathy [None]
  - Product use complaint [None]
  - Treponema test [None]
  - Antibody test positive [None]
  - Vein collapse [None]
  - Drug monitoring procedure not performed [None]

NARRATIVE: CASE EVENT DATE: 20180212
